FAERS Safety Report 20760079 (Version 15)
Quarter: 2023Q1

REPORT INFORMATION
  Report Type: Report from Study
  Country: AU (occurrence: AU)
  Receive Date: 20220428
  Receipt Date: 20230315
  Transmission Date: 20230418
  Serious: Yes (Death, Life-Threatening, Disabling, Other)
  Sender: FDA-Public Use
  Company Number: AU-AMGEN-AUSCT2022072651

PATIENT
  Age: 12 Year
  Sex: Male

DRUGS (42)
  1. CARFILZOMIB [Suspect]
     Active Substance: CARFILZOMIB
     Indication: Acute lymphocytic leukaemia
     Dosage: 104 MILLIGRAM
     Route: 042
     Dates: start: 20220405
  2. DEXAMETHASONE [Suspect]
     Active Substance: DEXAMETHASONE
     Indication: Acute lymphocytic leukaemia
     Dosage: 1.52-5.56 MILLIGRAM
     Route: 065
     Dates: start: 20220405, end: 20220423
  3. DAUNORUBICIN [Suspect]
     Active Substance: DAUNORUBICIN
     Indication: Acute lymphocytic leukaemia
     Dosage: 112 MILLIGRAM
     Route: 065
     Dates: start: 20220407, end: 20220407
  4. ASPARAGINASE [Suspect]
     Active Substance: ASPARAGINASE
     Indication: Acute lymphocytic leukaemia
     Dosage: 9200 UNK
     Route: 065
     Dates: start: 20220408, end: 20220419
  5. VINCRISTINE [Concomitant]
     Active Substance: VINCRISTINE
     Dosage: 2 MILLIGRAM
     Route: 065
     Dates: start: 20220405, end: 20220419
  6. OMEPRAZOLE [Concomitant]
     Active Substance: OMEPRAZOLE
     Dosage: 20 MILLIGRAM
     Route: 048
     Dates: start: 20220414, end: 20220414
  7. AMIKACIN [Concomitant]
     Active Substance: AMIKACIN
     Dosage: 1350 MILLIGRAM
     Route: 042
     Dates: start: 20220412, end: 20220423
  8. CETIRIZINE [Concomitant]
     Active Substance: CETIRIZINE HYDROCHLORIDE
     Dosage: 10 MILLIGRAM
     Route: 048
     Dates: start: 20220408, end: 20220419
  9. HYDROCORTISONE [Concomitant]
     Active Substance: HYDROCORTISONE
     Dosage: 77.4-78 MILLIGRAM
     Route: 042
     Dates: start: 20220411, end: 20220413
  10. CLONIDINE [Concomitant]
     Active Substance: CLONIDINE
     Dosage: 50 MICROGRAM
     Route: 048
     Dates: start: 20220406, end: 20220423
  11. CYTARABINE [Concomitant]
     Active Substance: CYTARABINE
     Dosage: 30 MILLIGRAM
     Route: 037
     Dates: start: 20220404, end: 20220419
  12. METHOTREXATE [Concomitant]
     Active Substance: METHOTREXATE
     Dosage: 15 MILLIGRAM
     Route: 037
     Dates: start: 20220404, end: 20220419
  13. NOVORAPID [Concomitant]
     Active Substance: INSULIN ASPART
     Dosage: 25 UNK
     Route: 058
     Dates: start: 20220409, end: 20220411
  14. DEXTROSE\SODIUM CHLORIDE [Concomitant]
     Active Substance: DEXTROSE\SODIUM CHLORIDE
     Dosage: 231.25 UNK
     Route: 042
     Dates: start: 20220405, end: 20220407
  15. FENTANYL [Concomitant]
     Active Substance: FENTANYL
     Dosage: 2 UNK
     Route: 042
     Dates: start: 20220221, end: 20220406
  16. ACETAMINOPHEN [Concomitant]
     Active Substance: ACETAMINOPHEN
     Dosage: 1 GRAM
     Route: 042
     Dates: start: 20220301, end: 20220424
  17. PALONOSETRON [Concomitant]
     Active Substance: PALONOSETRON
     Dosage: 250 MICROGRAM
     Route: 042
     Dates: start: 20220307, end: 20220422
  18. BUTYLSCOPOLAMINE BROMIDE [Concomitant]
     Active Substance: BUTYLSCOPOLAMINE BROMIDE
     Dosage: 20 MILLIGRAM
     Route: 042
     Dates: start: 20220317, end: 20220420
  19. LEVOMEPROMAZINE [Concomitant]
     Active Substance: LEVOMEPROMAZINE
     Dosage: 1 MILLIGRAM
     Route: 042
     Dates: start: 20220327, end: 20220404
  20. PIPERACILLIN AND TAZOBACTAM [Concomitant]
     Active Substance: PIPERACILLIN SODIUM\TAZOBACTAM SODIUM
     Dosage: 4 GRAM
     Route: 042
     Dates: start: 20220330, end: 20220410
  21. VORICONAZOLE [Concomitant]
     Active Substance: VORICONAZOLE
     Dosage: 450 MILLIGRAM
     Route: 042
     Dates: start: 20220330, end: 20220331
  22. AMOXICILLIN [Concomitant]
     Active Substance: AMOXICILLIN
     Dosage: 250 MILLIGRAM
     Route: 042
     Dates: start: 20220330, end: 20220411
  23. SMOFLIPID [Concomitant]
     Active Substance: FISH OIL\MEDIUM-CHAIN TRIGLYCERIDES\OLIVE OIL\SOYBEAN OIL
     Dosage: 6.35 UNK
     Route: 042
     Dates: start: 20220330, end: 20220413
  24. METFORMIN [Concomitant]
     Active Substance: METFORMIN HYDROCHLORIDE
     Dosage: 500 MILLIGRAM
     Route: 048
     Dates: start: 20220330, end: 20220402
  25. MICAFUNGIN [Concomitant]
     Active Substance: MICAFUNGIN
     Dosage: 50 MILLIGRAM
     Route: 042
     Dates: start: 20220331, end: 20220423
  26. FOSAPREPITANT [Concomitant]
     Active Substance: FOSAPREPITANT
     Dosage: 150 MILLIGRAM
     Route: 042
     Dates: start: 20220401, end: 20220401
  27. ALTEPLASE [Concomitant]
     Active Substance: ALTEPLASE
     Dosage: 1.5 MILLIGRAM
     Route: 050
     Dates: start: 20220403, end: 20220403
  28. REMIFENTANIL [Concomitant]
     Active Substance: REMIFENTANIL
     Dosage: 0.1 UNK
     Route: 042
     Dates: start: 20220404, end: 20220404
  29. PROPOFOL [Concomitant]
     Active Substance: PROPOFOL
     Dosage: 20 UNK
     Route: 042
     Dates: start: 20220404, end: 20220419
  30. METOCLOPRAMIDE [Concomitant]
     Active Substance: METOCLOPRAMIDE
     Dosage: 10 MILLIGRAM
     Route: 042
     Dates: start: 20220404, end: 20220406
  31. RASBURICASE [Concomitant]
     Active Substance: RASBURICASE
     Dosage: 6 MILLIGRAM
     Route: 042
     Dates: start: 20220406, end: 20220409
  32. FUROSEMIDE [Concomitant]
     Active Substance: FUROSEMIDE
     Dosage: UNK
     Route: 042
     Dates: start: 20220330, end: 20220409
  33. DIAZEPAM [Concomitant]
     Active Substance: DIAZEPAM
     Dosage: UNK
     Route: 042
     Dates: start: 20220403, end: 20220406
  34. TRANEXAMIC ACID [Concomitant]
     Active Substance: TRANEXAMIC ACID
     Dosage: UNK
     Route: 042
     Dates: start: 20220404, end: 20220408
  35. HYDROMORPHONE [Concomitant]
     Active Substance: HYDROMORPHONE
     Dosage: UNK
     Route: 042
     Dates: start: 20220406, end: 20220424
  36. SODIUM CHLORIDE [Concomitant]
     Active Substance: SODIUM CHLORIDE
     Dosage: 142 UNK-800 MILLILITER
     Route: 042
     Dates: start: 20220409, end: 20220422
  37. FAMOTIDINE [Concomitant]
     Active Substance: FAMOTIDINE
     Dosage: 20 MILLIGRAM
     Route: 047
     Dates: start: 20220408, end: 20220419
  38. INSULIN GLARGINE [Concomitant]
     Active Substance: INSULIN GLARGINE
     Dosage: 80 UNK
     Route: 058
     Dates: start: 20220409, end: 20220413
  39. MEROPENEM [Concomitant]
     Active Substance: MEROPENEM
     Dosage: 2 GRAM
     Route: 042
     Dates: start: 20220414, end: 20220424
  40. PENTAMIDINE [Concomitant]
     Active Substance: PENTAMIDINE
     Dosage: 300 MILLIGRAM
     Route: 042
     Dates: start: 20220419, end: 20220419
  41. TEICOPLANIN [Concomitant]
     Active Substance: TEICOPLANIN
     Dosage: 800 MILLIGRAM
     Route: 042
     Dates: start: 20220422, end: 20220423
  42. DEXTROSE [Concomitant]
     Active Substance: DEXTROSE
     Dosage: 79 MILLILITER
     Route: 042
     Dates: start: 20220414, end: 20220414

REACTIONS (3)
  - Sepsis syndrome [Fatal]
  - Sepsis [Recovered/Resolved]
  - Colitis [Not Recovered/Not Resolved]

NARRATIVE: CASE EVENT DATE: 20220423
